FAERS Safety Report 11757852 (Version 1)
Quarter: 2015Q4

REPORT INFORMATION
  Report Type: Spontaneous
  Country: GB (occurrence: GB)
  Receive Date: 20151120
  Receipt Date: 20151120
  Transmission Date: 20160304
  Serious: Yes (Other)
  Sender: FDA-Public Use
  Company Number: GB-ROCHE-1640694

PATIENT
  Age: 74 Year
  Sex: Female

DRUGS (4)
  1. SALBUTAMOL INHALER [Concomitant]
     Indication: ASTHMA
     Dosage: 2 PUFFS, INHALATION
     Route: 065
  2. OXYCODONE [Concomitant]
     Active Substance: OXYCODONE
     Indication: PAIN
     Route: 048
  3. LANSOPRAZOLE. [Concomitant]
     Active Substance: LANSOPRAZOLE
     Route: 048
  4. RITUXIMAB [Suspect]
     Active Substance: RITUXIMAB
     Indication: NON-HODGKIN^S LYMPHOMA
     Route: 058
     Dates: start: 20150602

REACTIONS (5)
  - Cholelithiasis [Unknown]
  - Pain [Unknown]
  - Liver function test abnormal [Recovering/Resolving]
  - Vomiting [Unknown]
  - Abdominal pain [Unknown]

NARRATIVE: CASE EVENT DATE: 20150731
